FAERS Safety Report 12110813 (Version 1)
Quarter: 2016Q1

REPORT INFORMATION
  Report Type: Spontaneous
  Country: JP (occurrence: JP)
  Receive Date: 20160224
  Receipt Date: 20160224
  Transmission Date: 20160526
  Serious: Yes (Death, Other)
  Sender: FDA-Public Use
  Company Number: JP-PFIZER INC-2016106094

PATIENT
  Age: 65 Year
  Sex: Male

DRUGS (8)
  1. IRINOTECAN HCL [Suspect]
     Active Substance: IRINOTECAN HYDROCHLORIDE
     Indication: COLON CANCER
     Dosage: UNK
     Dates: end: 201308
  2. CALCIUM FOLINATE [Suspect]
     Active Substance: LEUCOVORIN CALCIUM
     Indication: COLON CANCER
     Dosage: UNK
     Dates: end: 201308
  3. BETAMETHASONE. [Concomitant]
     Active Substance: BETAMETHASONE
     Dosage: 1 MG, DAILY
  4. FLUOROURACIL. [Suspect]
     Active Substance: FLUOROURACIL
     Indication: COLON CANCER
     Dosage: UNK
     Dates: end: 201308
  5. CETUXIMAB [Suspect]
     Active Substance: CETUXIMAB
     Indication: COLON CANCER
     Dosage: UNK
     Dates: start: 201303, end: 201308
  6. TETRACYCLINE [Concomitant]
     Active Substance: TETRACYCLINE
     Dosage: 1000 MG, DAILY
  7. TETRACYCLINE [Concomitant]
     Active Substance: TETRACYCLINE
     Dosage: 500 MG, DAILY
  8. BETAMETHASONE. [Concomitant]
     Active Substance: BETAMETHASONE
     Dosage: 0.5 MG, DAILY

REACTIONS (3)
  - Ecthyma [Recovering/Resolving]
  - Erythema [Recovering/Resolving]
  - Malaise [Not Recovered/Not Resolved]
